FAERS Safety Report 5064926-0 (Version None)
Quarter: 2006Q3

REPORT INFORMATION
  Report Type: 
  Country: None (occurrence: None)
  Receive Date: 20060727
  Receipt Date: 20060727
  Transmission Date: 20061208
  Serious: Yes (Hospitalization)
  Sender: FDA-Public Use
  Company Number: None

PATIENT
  Age: 85 Year
  Sex: Female
  Weight: 70.3075 kg

DRUGS (6)
  1. WARFARIN SODIUM [Suspect]
     Indication: ATRIAL FIBRILLATION
     Dosage: 5 MG PER DAILY [CHRONIC SINCE 2/0?]
  2. PHENERGAN HCL [Concomitant]
  3. LASIX [Concomitant]
  4. GLIPIZIDE [Concomitant]
  5. KLORICON [Concomitant]
  6. NITROGLYCERIN [Concomitant]

REACTIONS (4)
  - CONTUSION [None]
  - INTERNATIONAL NORMALISED RATIO INCREASED [None]
  - ORAL INTAKE REDUCED [None]
  - WEIGHT DECREASED [None]
